FAERS Safety Report 7936688-8 (Version None)
Quarter: 2011Q4

REPORT INFORMATION
  Report Type: 
  Country: None (occurrence: None)
  Receive Date: 20111123
  Receipt Date: 20111108
  Transmission Date: 20120403
  Serious: Yes (Other)
  Sender: FDA-Public Use
  Company Number: JP-PFIZER INC-2011244246

PATIENT
  Age: 71 Year
  Sex: Female

DRUGS (3)
  1. DECADRON [Concomitant]
     Indication: LEUKAEMIA PLASMACYTIC
     Route: 048
  2. DOXORUBICIN HYDROCHLORIDE [Concomitant]
     Indication: LEUKAEMIA PLASMACYTIC
     Route: 042
  3. ONCOVIN [Suspect]
     Indication: LEUKAEMIA PLASMACYTIC
     Route: 042

REACTIONS (1)
  - ILEUS PARALYTIC [None]
